FAERS Safety Report 8504000 (Version 3)
Quarter: 2012Q4

REPORT INFORMATION
  Report Type: 
  Country: US (occurrence: US)
  Receive Date: 20120411
  Receipt Date: 20121228
  Transmission Date: 20130627
  Serious: Yes (Other)
  Sender: FDA-Public Use
  Company Number: US-ROCHE-1056131

PATIENT
  Sex: Female
  Weight: 49.03 kg

DRUGS (3)
  1. ACCUTANE [Suspect]
     Indication: ACNE
     Dosage: 40 mg 1 day alternating with 60 mg
     Route: 065
     Dates: start: 20010829, end: 20020107
  2. MINOCIN [Concomitant]
     Route: 065
     Dates: start: 20001012
  3. DOXYCYCLINE [Concomitant]
     Route: 065
     Dates: start: 1997

REACTIONS (4)
  - Diverticulitis [Unknown]
  - Inflammatory bowel disease [Unknown]
  - Depressed mood [Unknown]
  - Irritable bowel syndrome [Unknown]
